FAERS Safety Report 22832999 (Version 2)
Quarter: 2023Q4

REPORT INFORMATION
  Report Type: Spontaneous
  Country: US (occurrence: US)
  Receive Date: 20230817
  Receipt Date: 20231020
  Transmission Date: 20240109
  Serious: No
  Sender: FDA-Public Use
  Company Number: US-PFIZER INC-PV202300140466

PATIENT
  Age: 57 Year
  Sex: Male
  Weight: 104.33 kg

DRUGS (3)
  1. NURTEC ODT [Suspect]
     Active Substance: RIMEGEPANT SULFATE
     Dosage: TAKE ONE TABLET BY MOUTH DAILY AS NEEDED, NO MORE THAN ONE DOSE IN 24 HRS
     Route: 048
  2. NURTEC ODT [Suspect]
     Active Substance: RIMEGEPANT SULFATE
     Dosage: 150 MG (ONE IN THE MORNING AND THE OTHER 24 HOURS LATER)
     Route: 048
  3. NURTEC ODT [Suspect]
     Active Substance: RIMEGEPANT SULFATE
     Dosage: 50 MG, DAILY (50MG A PIECE AND HE WOULD TAKE ONE EVERY 24 HOURS)
     Route: 048
     Dates: start: 202308

REACTIONS (9)
  - Dizziness [Not Recovered/Not Resolved]
  - Condition aggravated [Unknown]
  - Gastrointestinal disorder [Unknown]
  - Decreased appetite [Unknown]
  - Muscle twitching [Unknown]
  - Anxiety [Unknown]
  - Sleep disorder [Unknown]
  - Weight decreased [Unknown]
  - Depression [Unknown]

NARRATIVE: CASE EVENT DATE: 20230101
